FAERS Safety Report 8290365-5 (Version None)
Quarter: 2012Q2

REPORT INFORMATION
  Report Type: 
  Country: None (occurrence: None)
  Receive Date: 20120412
  Receipt Date: 20120412
  Transmission Date: 20120825
  Serious: Yes (Other)
  Sender: FDA-Public Use
  Company Number: None

PATIENT
  Age: 55 Year
  Sex: Male
  Weight: 68.0396 kg

DRUGS (1)
  1. HYDROGEN PEROXIDE SOLUTION [Suspect]
     Indication: ACCIDENTAL EXPOSURE
     Dosage: 1 IN 1 DAY, INHALATION
     Route: 055
     Dates: start: 20110101, end: 20110101

REACTIONS (2)
  - ACCIDENTAL EXPOSURE [None]
  - PAIN [None]
